FAERS Safety Report 7187542-3 (Version None)
Quarter: 2010Q4

REPORT INFORMATION
  Report Type: 
  Country: None (occurrence: None)
  Receive Date: 20101222
  Receipt Date: 20100629
  Transmission Date: 20110411
  Serious: No
  Sender: FDA-Public Use
  Company Number: US-AMGEN-KDL421202

PATIENT

DRUGS (6)
  1. ENBREL [Suspect]
     Indication: PRODUCT USED FOR UNKNOWN INDICATION
     Dosage: 50 MG, QWK
     Route: 058
  2. IBUPROFEN [Concomitant]
  3. PROMETRIUM [Concomitant]
     Dosage: 200 MG, UNK
  4. ACETAMINOPHEN AND HYDROCODONE BITARTRATE [Concomitant]
     Dosage: 500 MG, UNK
  5. LEFLUNOMIDE [Concomitant]
     Dosage: 10 MG, UNK
  6. CALCIUM [Concomitant]

REACTIONS (1)
  - BRONCHITIS [None]
